FAERS Safety Report 5520859-4 (Version None)
Quarter: 2007Q4

REPORT INFORMATION
  Report Type: 
  Country: None (occurrence: None)
  Receive Date: 20071119
  Receipt Date: 20071112
  Transmission Date: 20080405
  Serious: Yes (Hospitalization)
  Sender: FDA-Public Use
  Company Number: B0491383B

PATIENT
  Age: 49 Year
  Sex: Female
  Weight: 79.5 kg

DRUGS (2)
  1. LAPATINIB [Suspect]
     Route: 048
     Dates: start: 20071002
  2. CAPECITABINE [Suspect]
     Route: 048
     Dates: start: 20071002

REACTIONS (2)
  - ABDOMINAL PAIN [None]
  - MUSCULOSKELETAL PAIN [None]
